FAERS Safety Report 11324648 (Version 2)
Quarter: 2015Q4

REPORT INFORMATION
  Report Type: Spontaneous
  Country: US (occurrence: US)
  Receive Date: 20150730
  Receipt Date: 20151023
  Transmission Date: 20160304
  Serious: No
  Sender: FDA-Public Use
  Company Number: US-PFIZER INC-2015240143

PATIENT
  Age: 82 Year
  Sex: Female

DRUGS (7)
  1. SUTENT [Suspect]
     Active Substance: SUNITINIB MALATE
     Dosage: 25 MG, 1X/DAY
     Dates: start: 20150728
  2. ESCITALOPRAM [Concomitant]
     Active Substance: ESCITALOPRAM OXALATE
     Indication: DEPRESSION
     Dosage: 20 MG, 1X/DAY
  3. MAGNESIUM CHLORIDE. [Concomitant]
     Active Substance: MAGNESIUM CHLORIDE
     Dosage: STARTED 10 YEARS AGO
  4. TRIAMTERENE HCTZ [Concomitant]
     Active Substance: HYDROCHLOROTHIAZIDE\TRIAMTERENE
     Indication: BLOOD PRESSURE ABNORMAL
     Dosage: 25 MG, 1X/DAY (TRIAMTERENE-37.5MG/HCTZ-25MG), TAKEN FOR YEARS
  5. POTASSIUM [Concomitant]
     Active Substance: POTASSIUM
     Dosage: UNK, 2X/DAY (STARTED 5 YEARS AGO)
     Dates: start: 2010
  6. SUTENT [Suspect]
     Active Substance: SUNITINIB MALATE
     Indication: METASTATIC RENAL CELL CARCINOMA
     Dosage: 37.5 MG, DAILY
     Dates: start: 20150529, end: 20150625
  7. ATENOLOL. [Concomitant]
     Active Substance: ATENOLOL
     Indication: BLOOD PRESSURE ABNORMAL
     Dosage: 50 MG, 2X/DAY (TAKEN FOR YEARS)

REACTIONS (7)
  - Muscular weakness [Not Recovered/Not Resolved]
  - Oral pain [Recovered/Resolved]
  - Gait disturbance [Not Recovered/Not Resolved]
  - Constipation [Unknown]
  - Muscle spasms [Unknown]
  - Hypoacusis [Unknown]
  - Fatigue [Unknown]

NARRATIVE: CASE EVENT DATE: 201506
